FAERS Safety Report 7330661-9 (Version None)
Quarter: 2011Q1

REPORT INFORMATION
  Report Type: 
  Country: None (occurrence: None)
  Receive Date: 20110225
  Receipt Date: 20110225
  Transmission Date: 20110831
  Serious: Yes (Hospitalization)
  Sender: FDA-Public Use
  Company Number: None

PATIENT
  Sex: Female
  Weight: 74.8435 kg

DRUGS (2)
  1. BONIVA [Suspect]
     Indication: OSTEOPOROSIS
     Dosage: 1 MONTHLY
  2. ACTONEL [Suspect]
     Indication: OSTEOPOROSIS
     Dosage: 1 WEEKLY

REACTIONS (3)
  - ANKLE FRACTURE [None]
  - FRACTURE [None]
  - BACK DISORDER [None]
